FAERS Safety Report 6725371-2 (Version None)
Quarter: 2010Q2

REPORT INFORMATION
  Report Type: 
  Country: None (occurrence: None)
  Receive Date: 20100514
  Receipt Date: 20100506
  Transmission Date: 20101027
  Serious: Yes (Other)
  Sender: FDA-Public Use
  Company Number: FR-AMGEN-UK380587

PATIENT

DRUGS (1)
  1. NEUPOGEN [Suspect]
     Indication: CHEMOTHERAPY

REACTIONS (3)
  - FEBRILE NEUTROPENIA [None]
  - NEUTROPENIA [None]
  - NEUTROPENIC INFECTION [None]
